FAERS Safety Report 6138586-1 (Version None)
Quarter: 2009Q1

REPORT INFORMATION
  Report Type: 
  Country: None (occurrence: None)
  Receive Date: 20090331
  Receipt Date: 20090318
  Transmission Date: 20090719
  Serious: Yes (Hospitalization)
  Sender: FDA-Public Use
  Company Number: ES-ELI_LILLY_AND_COMPANY-ES200811003163

PATIENT
  Sex: Female
  Weight: 65 kg

DRUGS (5)
  1. DULOXETINE HYDROCHLORIDE [Suspect]
     Indication: DEPRESSION
     Dosage: 30 OR 60 MG, DAILY (1/D)
     Route: 048
     Dates: start: 20080801, end: 20080801
  2. DULOXETINE HYDROCHLORIDE [Suspect]
     Dosage: 60 MG, UNKNOWN
     Route: 065
     Dates: start: 20080801, end: 20080804
  3. ANAFRANIL [Concomitant]
     Indication: DEPRESSION
     Dosage: 100 MG, DAILY (1/D)
     Route: 048
  4. LEXATIN [Concomitant]
     Dosage: 1-3 D/F, DAILY (1/D)
     Route: 065
  5. PANTECTA [Concomitant]
     Dosage: 40 MG, UNKNOWN
     Route: 048

REACTIONS (3)
  - HYPERSENSITIVITY [None]
  - LEUKOCYTOSIS [None]
  - TRANSAMINASES INCREASED [None]
